FAERS Safety Report 20584288 (Version 1)
Quarter: 2022Q1

REPORT INFORMATION
  Report Type: Report from Study
  Country: IT (occurrence: IT)
  Receive Date: 20220311
  Receipt Date: 20220311
  Transmission Date: 20220423
  Serious: Yes (Other)
  Sender: FDA-Public Use
  Company Number: None

PATIENT
  Age: 37 Year
  Sex: Female

DRUGS (1)
  1. TOPAMAX [Suspect]
     Active Substance: TOPIRAMATE
     Indication: Headache
     Dosage: ; IN TOTAL
     Route: 048
     Dates: start: 20211211, end: 20211211

REACTIONS (7)
  - Chest pain [Recovered/Resolved]
  - Vision blurred [Recovered/Resolved]
  - Rash pruritic [Recovered/Resolved]
  - Dysphonia [Recovered/Resolved]
  - Palpitations [Recovered/Resolved]
  - Diplopia [Recovered/Resolved]
  - Arthralgia [Recovered/Resolved]

NARRATIVE: CASE EVENT DATE: 20211211
